FAERS Safety Report 16278949 (Version 2)
Quarter: 2019Q2

REPORT INFORMATION
  Report Type: Spontaneous
  Country: US (occurrence: US)
  Receive Date: 20190506
  Receipt Date: 20190507
  Transmission Date: 20190711
  Serious: Yes (Death, Hospitalization, Other)
  Sender: FDA-Public Use
  Company Number: US-CELGENEUS-USA-20190500582

PATIENT
  Sex: Female

DRUGS (1)
  1. REVLIMID [Suspect]
     Active Substance: LENALIDOMIDE
     Indication: DIFFUSE LARGE B-CELL LYMPHOMA
     Dosage: 25 MILLIGRAM
     Route: 048
     Dates: start: 201903, end: 201905

REACTIONS (5)
  - Lethargy [Unknown]
  - Hypotension [Unknown]
  - Oedema peripheral [Unknown]
  - Respiratory distress [Unknown]
  - Death [Fatal]

NARRATIVE: CASE EVENT DATE: 20190501
